FAERS Safety Report 6825753-4 (Version None)
Quarter: 2010Q3

REPORT INFORMATION
  Report Type: 
  Country: None (occurrence: None)
  Receive Date: 20100709
  Receipt Date: 20100630
  Transmission Date: 20110219
  Serious: No
  Sender: FDA-Public Use
  Company Number: US-BIOGENIDEC-2010BI022595

PATIENT
  Sex: Female

DRUGS (4)
  1. TYSABRI [Suspect]
     Indication: MULTIPLE SCLEROSIS
     Route: 042
     Dates: start: 20040101, end: 20040101
  2. TYSABRI [Suspect]
     Route: 042
     Dates: start: 20061004, end: 20061101
  3. TYSABRI [Suspect]
     Route: 042
     Dates: start: 20100310, end: 20100506
  4. BENADRYL [Concomitant]
     Indication: PREMEDICATION
     Dates: start: 20100310

REACTIONS (3)
  - DRUG EFFECT DECREASED [None]
  - DRUG SPECIFIC ANTIBODY PRESENT [None]
  - INFUSION RELATED REACTION [None]
